FAERS Safety Report 5515915-0 (Version None)
Quarter: 2007Q4

REPORT INFORMATION
  Report Type: 
  Country: None (occurrence: None)
  Receive Date: 20071114
  Receipt Date: 20071106
  Transmission Date: 20080405
  Serious: Yes (Other)
  Sender: FDA-Public Use
  Company Number: US-ASTRAZENECA-2007UW25781

PATIENT
  Age: 78 Year
  Sex: Female
  Weight: 74.8 kg

DRUGS (6)
  1. CRESTOR [Suspect]
     Indication: BLOOD CHOLESTEROL INCREASED
     Route: 048
  2. ATENOLOL [Concomitant]
     Route: 048
  3. DIGITEK [Concomitant]
  4. LASIX [Concomitant]
  5. ALLOPURINOL [Concomitant]
  6. COUMADIN [Concomitant]

REACTIONS (1)
  - EYE HAEMORRHAGE [None]
